FAERS Safety Report 18533512 (Version 1)
Quarter: 2020Q4

REPORT INFORMATION
  Report Type: Spontaneous
  Country: US (occurrence: US)
  Receive Date: 20201120
  Receipt Date: 20201120
  Transmission Date: 20210114
  Serious: Yes (Hospitalization)
  Sender: FDA-Public Use
  Company Number: None

PATIENT
  Age: 64 Year
  Sex: Male
  Weight: 90.7 kg

DRUGS (1)
  1. BAMLANIVIMAB. [Suspect]
     Active Substance: BAMLANIVIMAB
     Indication: COVID-19
     Dosage: ?          OTHER FREQUENCY:ONCE;?
     Route: 041
     Dates: start: 20201115, end: 20201115

REACTIONS (6)
  - Decreased appetite [None]
  - Fatigue [None]
  - Dehydration [None]
  - Dyspnoea [None]
  - Asthenia [None]
  - Hypoxia [None]

NARRATIVE: CASE EVENT DATE: 20201118
